FAERS Safety Report 23459108 (Version 1)
Quarter: 2024Q1

REPORT INFORMATION
  Report Type: Spontaneous
  Country: US (occurrence: US)
  Receive Date: 20240131
  Receipt Date: 20240131
  Transmission Date: 20240410
  Serious: No
  Sender: FDA-Public Use
  Company Number: US-AMGEN-USASP2024014691

PATIENT

DRUGS (1)
  1. NEULASTA [Suspect]
     Active Substance: PEGFILGRASTIM
     Indication: Pancreatic carcinoma
     Dosage: UNK UNK, QMO(NEULASTA AFTER 3RD DOSE OF CHEMOTHERAPY)
     Route: 065

REACTIONS (10)
  - Urine abnormality [Recovered/Resolved]
  - Pollakiuria [Unknown]
  - White blood cells urine positive [Unknown]
  - Back pain [Unknown]
  - Neutrophil count decreased [Recovered/Resolved]
  - Red blood cell count decreased [Unknown]
  - Injection site bruising [Unknown]
  - Disturbance in attention [Unknown]
  - Anxiety [Unknown]
  - Platelet count decreased [Unknown]

NARRATIVE: CASE EVENT DATE: 20240101
